FAERS Safety Report 5631754-4 (Version None)
Quarter: 2008Q1

REPORT INFORMATION
  Report Type: 
  Country: None (occurrence: None)
  Receive Date: 20080220
  Receipt Date: 20080204
  Transmission Date: 20080703
  Serious: Yes (Hospitalization, Other)
  Sender: FDA-Public Use
  Company Number: DE-BAYER-200810623GPV

PATIENT
  Age: 43 Year
  Sex: Female
  Weight: 55 kg

DRUGS (6)
  1. BETAFERON (INTERFERON BETA-1B, REKOMBINANT) [Suspect]
     Indication: MULTIPLE SCLEROSIS
     Route: 058
     Dates: start: 19970101
  2. CARBAMAZEPINE [Concomitant]
     Indication: RESTLESS LEGS SYNDROME
     Dosage: TOTAL DAILY DOSE: 200 MG
     Route: 048
  3. NEURONTIN [Concomitant]
     Indication: RESTLESS LEGS SYNDROME
     Dosage: TOTAL DAILY DOSE: 1200 MG
     Route: 048
  4. TEPILTA [Concomitant]
     Indication: OESOPHAGITIS
     Route: 065
  5. PANTOZOL [Concomitant]
     Indication: OESOPHAGITIS
     Route: 065
     Dates: end: 20080114
  6. PANTOZOL [Concomitant]
     Dosage: TOTAL DAILY DOSE: 20 MG
     Route: 065
     Dates: start: 20080114

REACTIONS (9)
  - INDURATION [None]
  - INFLAMMATION [None]
  - INFUSION SITE ERYTHEMA [None]
  - INJECTION SITE ABSCESS [None]
  - INJECTION SITE INFECTION [None]
  - INJECTION SITE NECROSIS [None]
  - INJECTION SITE PAIN [None]
  - PAIN [None]
  - STAPHYLOCOCCAL INFECTION [None]
